FAERS Safety Report 23897420 (Version 2)
Quarter: 2024Q3

REPORT INFORMATION
  Report Type: Report from Study
  Country: US (occurrence: US)
  Receive Date: 20240524
  Receipt Date: 20240802
  Transmission Date: 20241017
  Serious: No
  Sender: SANDOZ
  Company Number: US-SANDOZ-SDZ2024US012052

PATIENT
  Age: 9 Year
  Sex: Female

DRUGS (2)
  1. OMNITROPE [Suspect]
     Active Substance: SOMATROPIN
     Indication: Small for dates baby
     Dosage: 1.0 MG 2 DOSE EVERY N/A N/A
     Route: 058
     Dates: start: 20240202
  2. OMNITROPE [Suspect]
     Active Substance: SOMATROPIN
     Indication: Small for dates baby
     Dosage: 1.0 MG 2 DOSE EVERY N/A N/A
     Route: 058
     Dates: start: 20240202

REACTIONS (4)
  - Injection site bruising [Unknown]
  - Incorrect dose administered [Unknown]
  - Device difficult to use [Unknown]
  - Device issue [Unknown]

NARRATIVE: CASE EVENT DATE: 20240202
